FAERS Safety Report 13244965 (Version 1)
Quarter: 2017Q1

REPORT INFORMATION
  Report Type: Spontaneous
  Country: US (occurrence: US)
  Receive Date: 20170217
  Receipt Date: 20170217
  Transmission Date: 20170428
  Serious: No
  Sender: FDA-Public Use
  Company Number: US-GLAXOSMITHKLINE-US2017GSK020673

PATIENT
  Sex: Female

DRUGS (1)
  1. TRANSDERM SCOP [Suspect]
     Active Substance: SCOPOLAMINE
     Indication: VERTIGO
     Dosage: UNK
     Dates: start: 201611, end: 201611

REACTIONS (7)
  - Application site irritation [Unknown]
  - Therapeutic response unexpected [Unknown]
  - Dry mouth [Unknown]
  - Application site pruritus [Unknown]
  - Product use issue [Unknown]
  - Bruxism [Unknown]
  - Application site erythema [Unknown]
